FAERS Safety Report 23213247 (Version 2)
Quarter: 2024Q1

REPORT INFORMATION
  Report Type: Spontaneous
  Country: FR (occurrence: FR)
  Receive Date: 20231121
  Receipt Date: 20240319
  Transmission Date: 20240409
  Serious: Yes (Hospitalization)
  Sender: FDA-Public Use
  Company Number: FR-AFSSAPS-GR2023001092

PATIENT
  Age: 69 Year
  Sex: Male

DRUGS (4)
  1. BORTEZOMIB [Suspect]
     Active Substance: BORTEZOMIB
     Indication: Monoclonal gammopathy
     Dosage: 1.6 MILLIGRAM/SQ. METER
     Route: 040
     Dates: start: 20230626
  2. LENALIDOMIDE [Suspect]
     Active Substance: LENALIDOMIDE
     Indication: Monoclonal gammopathy
     Dosage: 1 DOSAGE FORM, 25 MG 21 DAYS/ 28
     Route: 048
     Dates: start: 20230626
  3. DARZALEX [Suspect]
     Active Substance: DARATUMUMAB
     Indication: Monoclonal gammopathy
     Dosage: 1800 MILLIGRAM
     Route: 058
     Dates: start: 20230626
  4. DEXAMETHASONE ACETATE [Suspect]
     Active Substance: DEXAMETHASONE ACETATE
     Indication: Monoclonal gammopathy
     Dosage: 1 DOSAGE FORM
     Route: 048
     Dates: start: 20230626

REACTIONS (2)
  - Cholestasis [Not Recovered/Not Resolved]
  - Hepatic cytolysis [Not Recovered/Not Resolved]

NARRATIVE: CASE EVENT DATE: 20230706
